FAERS Safety Report 7080923-8 (Version None)
Quarter: 2010Q4

REPORT INFORMATION
  Report Type: 
  Country: None (occurrence: None)
  Receive Date: 20101103
  Receipt Date: 20101026
  Transmission Date: 20110411
  Serious: Yes (Hospitalization)
  Sender: FDA-Public Use
  Company Number: GB-JNJFOC-20101007274

PATIENT
  Age: 77 Year
  Sex: Female
  Weight: 74.6 kg

DRUGS (4)
  1. GOLIMUMAB [Suspect]
     Indication: RHEUMATOID ARTHRITIS
     Route: 058
  2. CO CODAMOL [Concomitant]
     Indication: PAIN
     Route: 048
  3. ADCAL -D3 [Concomitant]
     Indication: PROPHYLAXIS
     Route: 048
  4. ZOLEDRONATE [Concomitant]
     Indication: PROPHYLAXIS
     Route: 042

REACTIONS (1)
  - URINARY TRACT INFECTION [None]
